FAERS Safety Report 15625891 (Version 1)
Quarter: 2018Q4

REPORT INFORMATION
  Report Type: Spontaneous
  Country: DK (occurrence: DK)
  Receive Date: 20181116
  Receipt Date: 20181116
  Transmission Date: 20190205
  Serious: Yes (Death, Hospitalization)
  Sender: FDA-Public Use
  Company Number: DK-NAPPMUNDI-GBR-2018-0061781

PATIENT
  Age: 56 Year
  Sex: Male

DRUGS (15)
  1. MORPHINE SULFATE. [Suspect]
     Active Substance: MORPHINE SULFATE
     Dosage: 600 MG, DAILY
     Route: 048
  2. MORPHINE SULFATE. [Suspect]
     Active Substance: MORPHINE SULFATE
     Dosage: 20 MG, DAILY
     Route: 048
  3. BUPIVACAINE. [Concomitant]
     Active Substance: BUPIVACAINE
     Dosage: 60 MG, DAILY
     Route: 065
  4. MORPHINE SULFATE. [Suspect]
     Active Substance: MORPHINE SULFATE
     Dosage: 400 MG, DAILY
     Route: 048
  5. FENTANYL. [Concomitant]
     Active Substance: FENTANYL
     Dosage: UNK
     Route: 065
  6. MORPHINE SULFATE. [Suspect]
     Active Substance: MORPHINE SULFATE
     Indication: CHEST PAIN
     Dosage: 48 MG, UNK
     Route: 037
  7. TRIAMCINOLONE [Concomitant]
     Active Substance: TRIAMCINOLONE
     Indication: SPINAL COMPRESSION FRACTURE
     Dosage: 40 MG, UNK
     Route: 008
  8. FENTANYL. [Concomitant]
     Active Substance: FENTANYL
     Dosage: 5 MG, DAILY
     Route: 065
  9. MORPHINE SULFATE. [Suspect]
     Active Substance: MORPHINE SULFATE
     Indication: CHEST PAIN
     Dosage: 300 MG, DAILY
     Route: 048
  10. MORPHINE SULFATE. [Suspect]
     Active Substance: MORPHINE SULFATE
     Dosage: 30 MG, TID
     Route: 008
  11. PREDNISOLONE. [Concomitant]
     Active Substance: PREDNISOLONE
     Indication: PRODUCT USED FOR UNKNOWN INDICATION
     Dosage: 50 MG, DAILY
     Route: 065
  12. FENTANYL. [Concomitant]
     Active Substance: FENTANYL
     Dosage: 0.2 MG, TID
     Route: 065
  13. MORPHINE SULFATE. [Suspect]
     Active Substance: MORPHINE SULFATE
     Dosage: 200 MG, DAILY
     Route: 048
  14. DIAZEPAM. [Concomitant]
     Active Substance: DIAZEPAM
     Dosage: UNK
     Route: 065
  15. MORPHINE SULFATE. [Suspect]
     Active Substance: MORPHINE SULFATE
     Dosage: 16 MG, TID
     Route: 037

REACTIONS (5)
  - Vomiting [Unknown]
  - Death [Fatal]
  - Hyperaesthesia [Recovered/Resolved]
  - Allodynia [Recovered/Resolved]
  - Nausea [Unknown]
